FAERS Safety Report 6985923-1 (Version None)
Quarter: 2010Q3

REPORT INFORMATION
  Report Type: 
  Country: None (occurrence: None)
  Receive Date: 20100915
  Receipt Date: 20100903
  Transmission Date: 20110219
  Serious: Yes (Other)
  Sender: FDA-Public Use
  Company Number: US-PFIZER INC-2010112384

PATIENT
  Sex: Female
  Weight: 63.492 kg

DRUGS (6)
  1. GEODON [Suspect]
     Indication: ANXIETY
     Dosage: 40 MG, 2X/DAY
     Route: 048
     Dates: start: 20100701
  2. GEODON [Suspect]
     Indication: PANIC ATTACK
  3. PAXIL [Concomitant]
     Indication: PANIC ATTACK
     Dosage: UNK
  4. PAXIL [Concomitant]
     Indication: ASTHMA
  5. BUSPAR [Concomitant]
     Indication: PANIC ATTACK
     Dosage: UNK
  6. BUSPAR [Concomitant]
     Indication: ASTHMA

REACTIONS (1)
  - VISUAL ACUITY REDUCED [None]
